FAERS Safety Report 16771836 (Version 1)
Quarter: 2019Q3

REPORT INFORMATION
  Report Type: Spontaneous
  Country: US (occurrence: US)
  Receive Date: 20190715
  Receipt Date: 20190715
  Transmission Date: 20191005
  Serious: No
  Sender: FDA-Public Use
  Company Number: None

PATIENT
  Sex: Female
  Weight: 52.62 kg

DRUGS (2)
  1. ARIKAYCE [Suspect]
     Active Substance: AMIKACIN
     Indication: MYCOBACTERIAL INFECTION
     Route: 055
     Dates: start: 20181215
  2. ARIKAYCE [Suspect]
     Active Substance: AMIKACIN
     Indication: LUNG INFECTION
     Route: 055
     Dates: start: 20181215

REACTIONS (1)
  - Adverse event [None]
